FAERS Safety Report 5555919-5 (Version None)
Quarter: 2007Q4

REPORT INFORMATION
  Report Type: 
  Country: None (occurrence: None)
  Receive Date: 20071213
  Receipt Date: 20071119
  Transmission Date: 20080405
  Serious: No
  Sender: FDA-Public Use
  Company Number: US-BOEHRINGER INGELHEIM PHARMACEUTICALS, INC.-2007-BP-23513BP

PATIENT
  Sex: Male

DRUGS (5)
  1. VIRAMUNE [Suspect]
     Indication: HIV INFECTION
     Dates: end: 20071013
  2. TRUVADA [Concomitant]
     Dates: start: 20071002, end: 20071013
  3. DOXYCYCLINE [Concomitant]
  4. PREVACID [Concomitant]
  5. ATRIPLA [Concomitant]
     Dates: start: 20071013

REACTIONS (1)
  - RASH [None]
